FAERS Safety Report 4899192-X (Version None)
Quarter: 2006Q1

REPORT INFORMATION
  Report Type: 
  Country: None (occurrence: None)
  Receive Date: 20060202
  Receipt Date: 20060118
  Transmission Date: 20060701
  Serious: Yes (Other)
  Sender: FDA-Public Use
  Company Number: SEWYE322123JAN06

PATIENT
  Sex: Female

DRUGS (1)
  1. ENBREL [Suspect]
     Indication: PSORIASIS
     Dosage: NOT SPECIFIED
     Route: 058
     Dates: start: 20050208, end: 20050501

REACTIONS (1)
  - LEUKOCYTOCLASTIC VASCULITIS [None]
